FAERS Safety Report 7388456-6 (Version None)
Quarter: 2011Q2

REPORT INFORMATION
  Report Type: 
  Country: None (occurrence: None)
  Receive Date: 20110401
  Receipt Date: 20110321
  Transmission Date: 20111010
  Serious: Yes (Other)
  Sender: FDA-Public Use
  Company Number: PHHY2011CA23854

PATIENT
  Sex: Female

DRUGS (1)
  1. ACLASTA [Suspect]
     Indication: OSTEOPOROSIS
     Dosage: UNK
     Route: 042
     Dates: start: 20101027

REACTIONS (9)
  - MULTIPLE FRACTURES [None]
  - FOOT FRACTURE [None]
  - BACK PAIN [None]
  - SKIN DISCOLOURATION [None]
  - ERYTHEMA [None]
  - HAND FRACTURE [None]
  - WHEELCHAIR USER [None]
  - ARTHRALGIA [None]
  - ABASIA [None]
